FAERS Safety Report 7340756-1 (Version None)
Quarter: 2011Q1

REPORT INFORMATION
  Report Type: 
  Country: None (occurrence: None)
  Receive Date: 20110309
  Receipt Date: 20110304
  Transmission Date: 20110831
  Serious: Yes (Hospitalization)
  Sender: FDA-Public Use
  Company Number: NL-ROCHE-763813

PATIENT
  Sex: Male

DRUGS (6)
  1. OXALIPLATIN [Suspect]
     Indication: COLORECTAL CANCER
     Dosage: DATE LAST CYCLE: 05 AUGUST 2010
     Route: 065
     Dates: start: 20100715
  2. CAPECITABINE [Suspect]
     Indication: COLORECTAL CANCER
     Dosage: DOSE LAST CYCLE: 5 AUGUST 2010
     Route: 065
     Dates: start: 20100715
  3. APROMAL TAB [Concomitant]
  4. SYMBICORD [Concomitant]
  5. OMNIC [Concomitant]
  6. BEVACIZUMAB [Suspect]
     Indication: COLORECTAL CANCER
     Dosage: DATE OF LAST CYCLE: 05 AUGUST 2010
     Route: 065
     Dates: start: 20100715

REACTIONS (1)
  - CHEST PAIN [None]
